FAERS Safety Report 17250810 (Version 2)
Quarter: 2020Q1

REPORT INFORMATION
  Report Type: Spontaneous
  Country: KR (occurrence: KR)
  Receive Date: 20200109
  Receipt Date: 20200205
  Transmission Date: 20200409
  Serious: Yes (Other)
  Sender: FDA-Public Use
  Company Number: KR-LUPIN PHARMACEUTICALS INC.-2020-00027

PATIENT
  Age: 51 Year
  Sex: Female

DRUGS (4)
  1. ISONIAZID. [Interacting]
     Active Substance: ISONIAZID
     Indication: PULMONARY TUBERCULOSIS
     Dosage: UNK, 4 MONTHS AGO
     Route: 065
  2. ISONIAZID. [Interacting]
     Active Substance: ISONIAZID
     Dosage: UNK (GIVEN AGAIN)
     Route: 065
  3. METOCLOPRAMIDE. [Suspect]
     Active Substance: METOCLOPRAMIDE
     Indication: DYSPEPSIA
     Dosage: 10 MILLIGRAM, BID (INJECTION)
     Route: 065
  4. ISONIAZID. [Interacting]
     Active Substance: ISONIAZID
     Dosage: 300 MILLIGRAM, UNK
     Route: 065

REACTIONS (3)
  - Serotonin syndrome [Recovered/Resolved]
  - Drug interaction [Unknown]
  - Toxicity to various agents [Recovered/Resolved]
